FAERS Safety Report 25732261 (Version 1)
Quarter: 2025Q3

REPORT INFORMATION
  Report Type: Spontaneous
  Country: US (occurrence: US)
  Receive Date: 20250827
  Receipt Date: 20250827
  Transmission Date: 20251021
  Serious: No
  Sender: PFIZER
  Company Number: US-PFIZER INC-PV202500103494

PATIENT
  Age: 64 Year
  Sex: Female

DRUGS (2)
  1. IBRANCE [Suspect]
     Active Substance: PALBOCICLIB
  2. PREDNISONE [Concomitant]
     Active Substance: PREDNISONE
     Indication: Liver disorder

REACTIONS (3)
  - Fatigue [Unknown]
  - Headache [Unknown]
  - Nasal congestion [Unknown]
